FAERS Safety Report 19068497 (Version 1)
Quarter: 2021Q1

REPORT INFORMATION
  Report Type: Spontaneous
  Country: US (occurrence: US)
  Receive Date: 20210329
  Receipt Date: 20210329
  Transmission Date: 20210420
  Serious: No
  Sender: FDA-Public Use
  Company Number: US-009507513-2103USA003335

PATIENT
  Age: 9 Year
  Sex: Female

DRUGS (2)
  1. DECADRON [Suspect]
     Active Substance: DEXAMETHASONE
     Indication: PLATELET COUNT DECREASED
     Dosage: 20 MILLIGRAM/SQ. METER FOR 4 DAYS EVERY 4 WEEKS
     Route: 048
     Dates: start: 2018
  2. RITUXIMAB. [Suspect]
     Active Substance: RITUXIMAB
     Indication: PLATELET COUNT DECREASED
     Dosage: 370 MILLIGRAM/SQ. METER
     Dates: start: 2018

REACTIONS (1)
  - Therapy non-responder [Unknown]
